FAERS Safety Report 7234778-9 (Version None)
Quarter: 2011Q1

REPORT INFORMATION
  Report Type: 
  Country: None (occurrence: None)
  Receive Date: 20110120
  Receipt Date: 20110112
  Transmission Date: 20110831
  Serious: Yes (Other)
  Sender: FDA-Public Use
  Company Number: PL-TEVA-263017ISR

PATIENT
  Sex: Male
  Weight: 63 kg

DRUGS (1)
  1. BICALUTAMIDE [Suspect]
     Indication: PROSTATE CANCER
     Route: 048
     Dates: start: 20100205, end: 20110111

REACTIONS (7)
  - FLATULENCE [None]
  - ARTHRALGIA [None]
  - AGITATION [None]
  - HYPERHIDROSIS [None]
  - CONSTIPATION [None]
  - SLEEP DISORDER [None]
  - DIARRHOEA [None]
